FAERS Safety Report 20810439 (Version 4)
Quarter: 2022Q3

REPORT INFORMATION
  Report Type: Report from Study
  Country: CA (occurrence: CA)
  Receive Date: 20220510
  Receipt Date: 20220728
  Transmission Date: 20221027
  Serious: Yes (Other)
  Sender: FDA-Public Use
  Company Number: CA-JNJFOC-20220365417

PATIENT
  Age: 40 Year
  Sex: Female

DRUGS (1)
  1. REMICADE [Suspect]
     Active Substance: INFLIXIMAB
     Indication: Hidradenitis
     Route: 042

REACTIONS (7)
  - Neuroprosthesis implantation [Recovered/Resolved]
  - COVID-19 [Recovered/Resolved]
  - Gout [Recovered/Resolved]
  - Throat irritation [Recovered/Resolved]
  - Arthritis [Recovered/Resolved]
  - Tooth disorder [Recovered/Resolved]
  - Pyrexia [Recovered/Resolved]

NARRATIVE: CASE EVENT DATE: 20220330
